FAERS Safety Report 8296476-2 (Version None)
Quarter: 2012Q2

REPORT INFORMATION
  Report Type: 
  Country: None (occurrence: None)
  Receive Date: 20120418
  Receipt Date: 20120410
  Transmission Date: 20120825
  Serious: Yes (Other)
  Sender: FDA-Public Use
  Company Number: US-B.I. PHARMACEUTICALS,INC./RIDGEFIELD-2012-EU-02019GD

PATIENT
  Age: 78 Year
  Sex: Male

DRUGS (3)
  1. PRAMIPEXOLE DIHYDROCHLORIDE [Suspect]
     Indication: PARKINSON'S DISEASE
     Dosage: 2.25 MG
  2. AMANTADINE HCL [Suspect]
     Indication: PARKINSON'S DISEASE
  3. CARBIDOPA AND LEVODOPA [Suspect]
     Indication: PARKINSON'S DISEASE
     Dosage: CARBIDOPA/LEVODOPA 25/100 MG QID

REACTIONS (3)
  - HALLUCINATION, VISUAL [None]
  - HALLUCINATION, TACTILE [None]
  - OEDEMA PERIPHERAL [None]
